FAERS Safety Report 7980220-X (Version None)
Quarter: 2011Q4

REPORT INFORMATION
  Report Type: 
  Country: None (occurrence: None)
  Receive Date: 20111214
  Receipt Date: 20111209
  Transmission Date: 20120403
  Serious: Yes (Hospitalization)
  Sender: FDA-Public Use
  Company Number: GB-GLAXOSMITHKLINE-A0956538A

PATIENT
  Age: 36 Year
  Sex: Male
  Weight: 78 kg

DRUGS (6)
  1. CLOZAPINE [Suspect]
     Indication: SCHIZOPHRENIA
     Dosage: 650MG PER DAY
     Dates: start: 20110414, end: 20111029
  2. PIRENZEPINE [Concomitant]
     Indication: EXTRAPYRAMIDAL DISORDER
     Dosage: 50MG PER DAY
  3. LAMOTRIGINE [Concomitant]
     Indication: CONVULSION
     Dosage: 150MG TWICE PER DAY
     Dates: start: 20110401
  4. VALPROATE SODIUM [Concomitant]
     Indication: CONVULSION
     Dosage: 500MG TWICE PER DAY
     Dates: start: 20110401
  5. SENNA CONCENTRATE + DOCUSATE SODIUM [Concomitant]
     Indication: CONSTIPATION
  6. NICOTINE [Suspect]
     Indication: NICOTINE DEPENDENCE
     Dosage: 25MG PER DAY
     Route: 062
     Dates: start: 20111003

REACTIONS (3)
  - TOXICITY TO VARIOUS AGENTS [None]
  - DRUG LEVEL INCREASED [None]
  - MALAISE [None]
